FAERS Safety Report 6145791-7 (Version None)
Quarter: 2009Q2

REPORT INFORMATION
  Report Type: 
  Country: None (occurrence: None)
  Receive Date: 20090403
  Receipt Date: 20090319
  Transmission Date: 20091009
  Serious: Yes (Other)
  Sender: FDA-Public Use
  Company Number: 8044383

PATIENT
  Age: 18 Year
  Sex: Male

DRUGS (3)
  1. KEPPRA [Suspect]
     Indication: EPILEPSY
     Dosage: 250 MG 2/D
     Dates: end: 20090301
  2. KEPPRA [Suspect]
     Indication: EPILEPSY
     Dosage: 500 MG 2/D
     Dates: start: 20090301
  3. EPILIM [Suspect]
     Dosage: 1 G 2/D

REACTIONS (2)
  - AGGRESSION [None]
  - PHYSICAL ASSAULT [None]
